FAERS Safety Report 6603244-3 (Version None)
Quarter: 2010Q1

REPORT INFORMATION
  Report Type: 
  Country: None (occurrence: None)
  Receive Date: 20100218
  Receipt Date: 20100205
  Transmission Date: 20100710
  Serious: Yes (Other)
  Sender: FDA-Public Use
  Company Number: 230206J10BRA

PATIENT
  Age: 28 Year
  Sex: Male

DRUGS (5)
  1. REBIF [Suspect]
     Indication: RELAPSING-REMITTING MULTIPLE SCLEROSIS
     Dosage: 22 MCG, 3 IN 1 WEEKS; 44 MCG, 3 IN 1 WEEKS
     Dates: start: 20050810, end: 20070601
  2. OTHERS (ALL OTHER THERAPEUTIC PRODUCTS) [Concomitant]
  3. MANTIDAN (AMANTADINE) (AMANTADINE0 [Concomitant]
  4. DEXTRIN + HYPROMELLOSE (LACRIMA EYEDROPS) (DEXTRAN) [Concomitant]
  5. DEXTRAN + HYPROMELLOSE (LACRIMA EYEDROPS) (HYPROMELLOSE) [Concomitant]

REACTIONS (1)
  - OPTIC NEURITIS [None]
